FAERS Safety Report 9162808 (Version 1)
Quarter: 2013Q1

REPORT INFORMATION
  Report Type: Report from Study
  Country: DE (occurrence: DE)
  Receive Date: 20130314
  Receipt Date: 20130314
  Transmission Date: 20140127
  Serious: Yes (Hospitalization)
  Sender: FDA-Public Use
  Company Number: DE-TEVA-390157ISR

PATIENT
  Age: 57 Year
  Sex: 0
  Weight: 42 kg

DRUGS (3)
  1. PACLITAXEL [Suspect]
     Indication: OVARIAN CANCER
     Dosage: 239.75 MILLIGRAM DAILY; LAST DOSE PRIOR TO SAE  ON 17-JAN-2013
     Route: 042
     Dates: start: 20121227
  2. CARBOPLATIN [Suspect]
     Indication: OVARIAN CANCER
     Dosage: 614 MILLIGRAM DAILY; LAST DOSE PRIOR TO SAE ON 17-JAN-2013
     Route: 042
     Dates: start: 20121227
  3. BEVACIZUMAB [Suspect]
     Indication: OVARIAN CANCER
     Dosage: 637.5 MILLIGRAM DAILY; LAST DOSE PRIOR TO SAE ON 17-JAN-2013
     Route: 042

REACTIONS (1)
  - Gastric cancer [Not Recovered/Not Resolved]
